FAERS Safety Report 6239165-8 (Version None)
Quarter: 2009Q2

REPORT INFORMATION
  Report Type: 
  Country: None (occurrence: None)
  Receive Date: 20090618
  Receipt Date: 20090608
  Transmission Date: 20091009
  Serious: Yes (Hospitalization, Other)
  Sender: FDA-Public Use
  Company Number: GXKR2009IT06676

PATIENT
  Age: 67 Year
  Sex: Male

DRUGS (2)
  1. ACETYLSALICYLIC ACID SRT [Suspect]
     Dosage: 100 MG/DAY
  2. LISINOPRIL [Concomitant]

REACTIONS (10)
  - ABDOMINAL TENDERNESS [None]
  - BLOOD CREATININE INCREASED [None]
  - FLANK PAIN [None]
  - HAEMOGLOBIN DECREASED [None]
  - MUSCLE HAEMORRHAGE [None]
  - PAIN [None]
  - PLATELET AGGREGATION ABNORMAL [None]
  - PROTEIN URINE PRESENT [None]
  - RENAL HAEMORRHAGE [None]
  - VOMITING [None]
